FAERS Safety Report 23208139 (Version 11)
Quarter: 2025Q1

REPORT INFORMATION
  Report Type: Report from Study
  Country: US (occurrence: US)
  Receive Date: 20231121
  Receipt Date: 20250331
  Transmission Date: 20250409
  Serious: Yes (Other)
  Sender: NOVARTIS
  Company Number: US-002147023-NVSC2023US242575

PATIENT
  Age: 48 Year
  Sex: Female
  Weight: 85.3 kg

DRUGS (12)
  1. KESIMPTA [Suspect]
     Active Substance: OFATUMUMAB
     Indication: Product used for unknown indication
     Route: 058
     Dates: start: 20230929
  2. KESIMPTA [Suspect]
     Active Substance: OFATUMUMAB
     Dosage: 1 DOSAGE FORM, QMO (INJECT 1 PEN UNDER THE SKIN)
     Route: 058
     Dates: start: 20240509
  3. AMLODIPINE [Concomitant]
     Active Substance: AMLODIPINE BESYLATE
     Indication: Product used for unknown indication
     Dosage: 5 MG, QD (TABLET)
     Route: 048
     Dates: start: 20240412
  4. BLISOVI FE 1/20 [Concomitant]
     Active Substance: ETHINYL ESTRADIOL\NORETHINDRONE ACETATE
     Indication: Product used for unknown indication
     Route: 048
     Dates: start: 20220904
  5. CLINDAMYCIN [Concomitant]
     Active Substance: CLINDAMYCIN
     Indication: Product used for unknown indication
     Route: 050
     Dates: start: 20220721
  6. METFORMIN [Concomitant]
     Active Substance: METFORMIN HYDROCHLORIDE
     Indication: Product used for unknown indication
     Route: 048
     Dates: start: 20240712
  7. MUPIROCIN [Concomitant]
     Active Substance: MUPIROCIN
     Indication: Product used for unknown indication
     Dosage: UNK, TID APPLY TOPICALLY THREE TIMES DAILY AS DIRECTED (OINTMENT)
     Route: 050
     Dates: start: 20230225
  8. PRAVASTATIN [Concomitant]
     Active Substance: PRAVASTATIN
     Indication: Product used for unknown indication
     Route: 048
     Dates: start: 20240412
  9. TRESIBA [Concomitant]
     Active Substance: INSULIN DEGLUDEC
     Indication: Product used for unknown indication
     Route: 058
     Dates: start: 20240314
  10. TRULICITY [Concomitant]
     Active Substance: DULAGLUTIDE
     Indication: Product used for unknown indication
     Dosage: UNK, QW (VERY 7 DAYS (INJECTION)
     Route: 058
     Dates: start: 20240314, end: 20240618
  11. DAPSONE [Concomitant]
     Active Substance: DAPSONE
     Indication: Product used for unknown indication
     Dosage: 100 MG, BID 1 TABLET, IN THE MORNING AND AT BEDTIME.
     Route: 048
     Dates: start: 20220331, end: 20240618
  12. FLUCONAZOLE [Concomitant]
     Active Substance: FLUCONAZOLE
     Indication: Product used for unknown indication
     Route: 048
     Dates: start: 20220330

REACTIONS (48)
  - Cerebrovascular accident [Unknown]
  - Multiple sclerosis [Unknown]
  - Band sensation [Unknown]
  - Depression [Unknown]
  - Anxiety [Unknown]
  - Mental fatigue [Unknown]
  - Asthenia [Unknown]
  - Hyperacusis [Unknown]
  - Photophobia [Unknown]
  - Neck pain [Unknown]
  - Apathy [Unknown]
  - Pain [Unknown]
  - Balance disorder [Unknown]
  - Depersonalisation/derealisation disorder [Unknown]
  - Gait disturbance [Unknown]
  - Decreased vibratory sense [Unknown]
  - Tremor [Unknown]
  - Hypoaesthesia [Unknown]
  - Reading disorder [Unknown]
  - Sluggishness [Unknown]
  - Musculoskeletal stiffness [Unknown]
  - Memory impairment [Unknown]
  - Ocular icterus [Unknown]
  - Abdominal distension [Unknown]
  - Upper respiratory tract infection [Unknown]
  - Blood glucose abnormal [Unknown]
  - Depressed mood [Unknown]
  - Feeling abnormal [Unknown]
  - Constipation [Unknown]
  - Fatigue [Unknown]
  - Decreased appetite [Unknown]
  - Headache [Unknown]
  - Snoring [Unknown]
  - Plantar fasciitis [Unknown]
  - Insomnia [Unknown]
  - Chest pain [Unknown]
  - Influenza like illness [Unknown]
  - Essential hypertension [Unknown]
  - Hypersomnia [Unknown]
  - Injection related reaction [Unknown]
  - Energy increased [Unknown]
  - Stress [Unknown]
  - Cerebral disorder [Unknown]
  - Heart rate irregular [Unknown]
  - Weight increased [Unknown]
  - Muscle spasms [Unknown]
  - Skin disorder [Unknown]
  - Tongue discolouration [Unknown]

NARRATIVE: CASE EVENT DATE: 20231106
